FAERS Safety Report 23962514 (Version 4)
Quarter: 2024Q3

REPORT INFORMATION
  Report Type: Spontaneous
  Country: TR (occurrence: TR)
  Receive Date: 20240611
  Receipt Date: 20240806
  Transmission Date: 20241016
  Serious: Yes (Other)
  Sender: NOVARTIS
  Company Number: TR-002147023-NVSC2024TR120289

PATIENT
  Age: 55 Year
  Sex: Male

DRUGS (2)
  1. TRAMETINIB [Suspect]
     Active Substance: TRAMETINIB
     Indication: Malignant melanoma stage III
     Dosage: 2 MG, QD
     Route: 065
     Dates: start: 202305
  2. DABRAFENIB [Suspect]
     Active Substance: DABRAFENIB
     Indication: Malignant melanoma stage III
     Dosage: 300 MG, QD (2X150 MG/ DAY)
     Route: 065
     Dates: start: 202305

REACTIONS (5)
  - Guillain-Barre syndrome [Unknown]
  - Facial paralysis [Unknown]
  - Dysarthria [Unknown]
  - Dysphagia [Unknown]
  - Muscular weakness [Unknown]
